FAERS Safety Report 6975631-5 (Version None)
Quarter: 2010Q3

REPORT INFORMATION
  Report Type: 
  Country: None (occurrence: None)
  Receive Date: 20100910
  Receipt Date: 20100901
  Transmission Date: 20110219
  Serious: Yes (Hospitalization, Other)
  Sender: FDA-Public Use
  Company Number: US-JNJFOC-20100901474

PATIENT
  Sex: Female
  Weight: 100.7 kg

DRUGS (8)
  1. FENTANYL-100 [Suspect]
     Indication: PAIN
     Route: 062
  2. FENTANYL-100 [Suspect]
     Route: 062
  3. ACTAVIS FENTANYL TRANSDEMAL SYSTEM [Suspect]
     Indication: PAIN
     Route: 062
  4. SEROQUEL [Concomitant]
     Indication: BIPOLAR DISORDER
     Route: 065
  5. VISTARIL [Concomitant]
     Indication: BIPOLAR DISORDER
     Route: 065
  6. KLONOPIN [Concomitant]
     Indication: BIPOLAR DISORDER
     Route: 065
  7. XANAX [Concomitant]
     Indication: BIPOLAR DISORDER
     Route: 065
  8. GEODON [Concomitant]
     Indication: BIPOLAR DISORDER
     Route: 065

REACTIONS (12)
  - ABNORMAL LOSS OF WEIGHT [None]
  - BACK INJURY [None]
  - BLOOD GLUCOSE INCREASED [None]
  - BRADYCARDIA [None]
  - COMPLEX REGIONAL PAIN SYNDROME [None]
  - DIABETES MELLITUS [None]
  - DRUG ADMINISTERED AT INAPPROPRIATE SITE [None]
  - FATIGUE [None]
  - NECK INJURY [None]
  - PRODUCT ADHESION ISSUE [None]
  - ROAD TRAFFIC ACCIDENT [None]
  - WRONG TECHNIQUE IN DRUG USAGE PROCESS [None]
